FAERS Safety Report 4328090-5 (Version None)
Quarter: 2004Q1

REPORT INFORMATION
  Report Type: 
  Country: None (occurrence: None)
  Receive Date: 20040331
  Receipt Date: 20040324
  Transmission Date: 20041129
  Serious: Yes (Hospitalization)
  Sender: FDA-Public Use
  Company Number: IT-ROCHE-362660

PATIENT
  Age: 71 Year
  Sex: Female

DRUGS (11)
  1. CELLCEPT [Suspect]
     Indication: GLOMERULONEPHRITIS
     Route: 048
     Dates: start: 20040101, end: 20040315
  2. DELTACORTENE [Suspect]
     Indication: GLOMERULONEPHRITIS
     Dosage: 'UNIT' NOT REPORTED.
     Route: 048
     Dates: start: 19840101, end: 20040310
  3. LASIX [Suspect]
     Dosage: 'UNIT' NOT REPORTED.
     Route: 048
     Dates: start: 20040101, end: 20040315
  4. ALLOPURINOLO [Concomitant]
     Dosage: 'UNIT' NOT REPORTED.
     Route: 048
     Dates: start: 20040101, end: 20040315
  5. CACIT D3 [Concomitant]
     Dosage: 'UNIT' NOT REPORTED. DRUG REPORTED AS 'CALCIUM CARBONATE+CHOLECALCIFEROL/CACIT'.
     Route: 048
  6. ENAPREN [Concomitant]
     Dosage: 'UNIT' NOT REPORTED.
     Route: 048
  7. ADALAT [Concomitant]
     Dosage: 'UNIT' NOT REPORTED.
     Route: 048
  8. LUVION [Concomitant]
     Dosage: 'UNIT' NOT REPORTED.
     Route: 048
  9. NESP [Concomitant]
     Dosage: 'UNIT' NOT REPORTED. DRUG REPORTED AS 'NESPO'.
     Route: 058
  10. ANTRA [Concomitant]
     Route: 048
  11. HALCION [Concomitant]
     Dosage: 'UNIT' NOT REPORTED.
     Route: 048

REACTIONS (4)
  - HYPERGLYCAEMIA [None]
  - HYPOAESTHESIA [None]
  - POLYDIPSIA [None]
  - POLYURIA [None]
